FAERS Safety Report 14379971 (Version 1)
Quarter: 2018Q1

REPORT INFORMATION
  Report Type: Spontaneous
  Country: US (occurrence: US)
  Receive Date: 20180112
  Receipt Date: 20180112
  Transmission Date: 20180509
  Serious: No
  Sender: FDA-Public Use
  Company Number: US-PFIZER INC-2018014486

PATIENT
  Age: 61 Year
  Sex: Male

DRUGS (4)
  1. NEURONTIN [Suspect]
     Active Substance: GABAPENTIN
     Indication: NEUROPATHY PERIPHERAL
     Dosage: 1600 MG, DAILY
     Route: 048
     Dates: start: 2009
  2. NEURONTIN [Suspect]
     Active Substance: GABAPENTIN
     Dosage: 3200 MG, DAILY
     Route: 048
     Dates: end: 201608
  3. GABAPENTIN. [Suspect]
     Active Substance: GABAPENTIN
     Indication: NEUROPATHY PERIPHERAL
     Dosage: 1600 MG, DAILY
     Route: 048
     Dates: start: 2009
  4. GABAPENTIN. [Suspect]
     Active Substance: GABAPENTIN
     Dosage: 3200 MG, DAILY
     Route: 048
     Dates: end: 201608

REACTIONS (10)
  - Insomnia [Not Recovered/Not Resolved]
  - Confusional state [Not Recovered/Not Resolved]
  - Malaise [Not Recovered/Not Resolved]
  - Limb discomfort [Unknown]
  - Dizziness [Not Recovered/Not Resolved]
  - Impatience [Not Recovered/Not Resolved]
  - Feeling hot [Unknown]
  - Feeling abnormal [Unknown]
  - Drug ineffective for unapproved indication [Not Recovered/Not Resolved]
  - Disturbance in attention [Not Recovered/Not Resolved]

NARRATIVE: CASE EVENT DATE: 2009
